FAERS Safety Report 18526812 (Version 6)
Quarter: 2021Q3

REPORT INFORMATION
  Report Type: Report from Study
  Country: US (occurrence: US)
  Receive Date: 20201120
  Receipt Date: 20210713
  Transmission Date: 20211014
  Serious: Yes (Hospitalization)
  Sender: FDA-Public Use
  Company Number: US-GLAXOSMITHKLINE-US2020GSK218948

PATIENT
  Age: 55 Year
  Sex: Female
  Weight: 115.65 kg

DRUGS (22)
  1. CARBOPLATIN. [Suspect]
     Active Substance: CARBOPLATIN
     Dosage: 6 AUC
     Route: 042
     Dates: start: 20200730, end: 20200730
  2. PACLITAXEL. [Suspect]
     Active Substance: PACLITAXEL
     Indication: OVARIAN CANCER
     Dosage: 403 MG
     Route: 042
     Dates: start: 20200324, end: 20200324
  3. LORAZEPAM. [Concomitant]
     Active Substance: LORAZEPAM
     Indication: ANXIETY
     Dosage: 0.5 MG, QD
     Route: 042
     Dates: start: 20201105, end: 20201105
  4. PACLITAXEL. [Suspect]
     Active Substance: PACLITAXEL
     Dosage: 382 MG
     Route: 042
     Dates: start: 20200730, end: 20200730
  5. BEVACIZUMAB. [Suspect]
     Active Substance: BEVACIZUMAB
     Indication: OVARIAN CANCER
     Dosage: UNK
     Route: 042
  6. BEVACIZUMAB. [Suspect]
     Active Substance: BEVACIZUMAB
     Dosage: 1300 MG/KG
     Route: 042
     Dates: start: 20201015, end: 20201015
  7. TBO?FILGRASTIM [Concomitant]
     Active Substance: TBO-FILGRASTIM
     Dosage: 480 UG, QD
     Route: 058
     Dates: start: 20201106, end: 20201110
  8. DOSTARLIMAB [Suspect]
     Active Substance: DOSTARLIMAB
     Dosage: 1000 MG
     Dates: start: 20201015, end: 20201015
  9. BEVACIZUMAB. [Suspect]
     Active Substance: BEVACIZUMAB
     Dosage: UNK
     Route: 042
     Dates: end: 20201112
  10. AMLODIPIN [Suspect]
     Active Substance: AMLODIPINE BESYLATE
     Indication: HYPERTENSION
     Dosage: 5 MG, QD
     Dates: start: 20201108, end: 20201111
  11. PIPERACILLIN AND TAZOBACTAM [Concomitant]
     Active Substance: PIPERACILLIN SODIUM\TAZOBACTAM SODIUM
     Indication: PNEUMONIA
     Dosage: 3.375 G, QID
     Route: 042
     Dates: start: 20201102, end: 20201107
  12. DOSTARLIMAB [Suspect]
     Active Substance: DOSTARLIMAB
     Indication: OVARIAN CANCER
     Dosage: 500 MG
     Dates: start: 20200416, end: 20200416
  13. DOSTARLIMAB [Suspect]
     Active Substance: DOSTARLIMAB
     Dosage: UNK
     Dates: end: 20201112
  14. CARBOPLATIN. [Suspect]
     Active Substance: CARBOPLATIN
     Indication: OVARIAN CANCER
     Dosage: 6 AUC
     Route: 042
     Dates: start: 20200324, end: 20200324
  15. BEVACIZUMAB. [Suspect]
     Active Substance: BEVACIZUMAB
     Dosage: 1431 MG/KG
     Route: 042
     Dates: start: 20200730, end: 20200730
  16. ALPRAZOLAM. [Concomitant]
     Active Substance: ALPRAZOLAM
     Indication: ANXIETY
     Dosage: 0.25 MG, PRN
     Route: 048
     Dates: start: 20201103, end: 20201105
  17. NITROGLYCERIN. [Concomitant]
     Active Substance: NITROGLYCERIN
     Indication: NON-CARDIAC CHEST PAIN
     Dosage: 0.4 MG, QD
     Dates: start: 20201109, end: 20201109
  18. NIRAPARIB [Suspect]
     Active Substance: NIRAPARIB
     Indication: OVARIAN CANCER
     Dosage: 300 MG, QD
     Dates: start: 20201015, end: 20201029
  19. DOCETAXEL. [Concomitant]
     Active Substance: DOCETAXEL
     Dosage: UNK
  20. PHOS NAK [Concomitant]
     Indication: HYPOPHOSPHATAEMIA
     Dosage: 2 DF (OTHER), QD
     Route: 048
     Dates: start: 20201107, end: 20201107
  21. CISPLATIN. [Concomitant]
     Active Substance: CISPLATIN
     Dosage: UNK
  22. TBO?FILGRASTIM [Concomitant]
     Active Substance: TBO-FILGRASTIM
     Indication: WHITE BLOOD CELL COUNT DECREASED
     Dosage: 300 UG, QD
     Route: 058
     Dates: start: 20201104, end: 20201105

REACTIONS (3)
  - Platelet count decreased [Recovered/Resolved with Sequelae]
  - Mucosal inflammation [Recovered/Resolved]
  - Hypotension [Recovered/Resolved]

NARRATIVE: CASE EVENT DATE: 20201102
